FAERS Safety Report 6451831-8 (Version None)
Quarter: 2009Q4

REPORT INFORMATION
  Report Type: 
  Country: None (occurrence: None)
  Receive Date: 20091123
  Receipt Date: 20091109
  Transmission Date: 20100525
  Serious: Yes (Life-Threatening)
  Sender: FDA-Public Use
  Company Number: US-MYLANLABS-2009S1019429

PATIENT

DRUGS (4)
  1. SEVOFLURANE [Suspect]
     Indication: INDUCTION OF ANAESTHESIA
  2. REMIFENTANIL [Suspect]
     Indication: INDUCTION OF ANAESTHESIA
     Route: 041
  3. ROCURONIUM BROMIDE [Suspect]
     Indication: INDUCTION OF ANAESTHESIA
  4. FENTANYL-100 [Suspect]

REACTIONS (1)
  - CARDIAC ARREST [None]
